FAERS Safety Report 4721360-8 (Version None)
Quarter: 2005Q3

REPORT INFORMATION
  Report Type: 
  Country: None (occurrence: None)
  Receive Date: 20050721
  Receipt Date: 20040719
  Transmission Date: 20060218
  Serious: No
  Sender: FDA-Public Use
  Company Number: US-BRISTOL-MYERS SQUIBB COMPANY-12644597

PATIENT
  Age: 62 Year
  Sex: Female
  Weight: 104 kg

DRUGS (4)
  1. COUMADIN [Suspect]
     Indication: AORTIC VALVE REPLACEMENT
     Dosage: ON VARYING DOSES; CURRENT RX: 5MG QD X 2DAYS; 10MG X 5 DAYS= 60MG/WEEKLY TOTAL
     Dates: start: 20010412
  2. ASPIRIN [Concomitant]
  3. TENORMIN [Concomitant]
  4. MULTI-VITAMIN [Concomitant]

REACTIONS (3)
  - INTERNATIONAL NORMALISED RATIO INCREASED [None]
  - TEETH BRITTLE [None]
  - TOOTH DISORDER [None]
